FAERS Safety Report 16441727 (Version 1)
Quarter: 2019Q2

REPORT INFORMATION
  Report Type: Report from Study
  Country: None (occurrence: US)
  Receive Date: 20190617
  Receipt Date: 20190617
  Transmission Date: 20190711
  Serious: Yes (Hospitalization)
  Sender: FDA-Public Use
  Company Number: US-US WORLDMEDS, LLC-USW201806-000855

PATIENT
  Age: 82 Year
  Sex: Male
  Weight: 97.52 kg

DRUGS (7)
  1. APOKYN [Suspect]
     Active Substance: APOMORPHINE HYDROCHLORIDE
     Indication: PARKINSON^S DISEASE
     Route: 058
     Dates: start: 20170925
  2. SINEMET [Concomitant]
     Active Substance: CARBIDOPA\LEVODOPA
  3. ACETYLSALICYLIC ACID [Concomitant]
     Active Substance: ASPIRIN
  4. LOSARTAN. [Concomitant]
     Active Substance: LOSARTAN
  5. AZILECT [Concomitant]
     Active Substance: RASAGILINE MESYLATE
  6. NEXIUM [Concomitant]
     Active Substance: ESOMEPRAZOLE MAGNESIUM
  7. SIMVASTATIN. [Concomitant]
     Active Substance: SIMVASTATIN

REACTIONS (1)
  - Cerebrovascular accident [Recovering/Resolving]

NARRATIVE: CASE EVENT DATE: 20180526
